FAERS Safety Report 4688208-1 (Version None)
Quarter: 2005Q2

REPORT INFORMATION
  Report Type: 
  Country: None (occurrence: None)
  Receive Date: 20050610
  Receipt Date: 20050602
  Transmission Date: 20051028
  Serious: Yes (Life-Threatening)
  Sender: FDA-Public Use
  Company Number: AU-ABBOTT-05P-008-0302248-00

PATIENT
  Sex: Female

DRUGS (2)
  1. EPILIM TABLETS [Suspect]
     Indication: DEPRESSION
     Route: 048
     Dates: start: 20050121, end: 20050208
  2. SERTRALINE HYDROCHLORIDE [Suspect]
     Indication: DEPRESSION
     Route: 048
     Dates: start: 20050131, end: 20050208

REACTIONS (2)
  - OVERDOSE [None]
  - SUICIDE ATTEMPT [None]
